FAERS Safety Report 5068691-2 (Version None)
Quarter: 2006Q3

REPORT INFORMATION
  Report Type: 
  Country: None (occurrence: None)
  Receive Date: 20060802
  Receipt Date: 20060215
  Transmission Date: 20061208
  Serious: No
  Sender: FDA-Public Use
  Company Number: US-BRISTOL-MYERS SQUIBB COMPANY-13284534

PATIENT
  Age: 82 Year
  Sex: Male
  Weight: 64 kg

DRUGS (10)
  1. COUMADIN [Suspect]
     Indication: AORTIC VALVE REPLACEMENT
     Dosage: TAKING 4 MG/D FOR 2-3 WEEKS; SINCE FEB-2006 WAS TAKING 4 MG FOR 6 DAYS AND 6 MG FOR 1 DAY
     Dates: start: 19940101
  2. COUMADIN [Suspect]
     Indication: STENT PLACEMENT
     Dosage: TAKING 4 MG/D FOR 2-3 WEEKS; SINCE FEB-2006 WAS TAKING 4 MG FOR 6 DAYS AND 6 MG FOR 1 DAY
     Dates: start: 19940101
  3. FEXOFENADINE HCL [Concomitant]
  4. NIFEDIPINE [Concomitant]
  5. METOPROLOL [Concomitant]
  6. VITAMIN B6 [Concomitant]
  7. VITAMIN B-12 [Concomitant]
  8. FOLIC ACID [Concomitant]
  9. FISH OIL [Concomitant]
  10. OXYCODONE HCL [Concomitant]

REACTIONS (1)
  - INTERNATIONAL NORMALISED RATIO ABNORMAL [None]
